FAERS Safety Report 24362762 (Version 1)
Quarter: 2024Q3

REPORT INFORMATION
  Report Type: Spontaneous
  Country: GB (occurrence: GB)
  Receive Date: 20240925
  Receipt Date: 20240925
  Transmission Date: 20241016
  Serious: Yes (Other)
  Sender: ELI LILLY AND CO
  Company Number: None

PATIENT
  Age: 38 Year
  Sex: Female

DRUGS (1)
  1. MIRIKIZUMAB [Suspect]
     Active Substance: MIRIKIZUMAB
     Indication: Proctitis ulcerative
     Dosage: 300 MG, OTHER (EVERY 4 WEEKS)
     Route: 065
     Dates: start: 20240620, end: 20240905

REACTIONS (2)
  - Joint stiffness [Recovering/Resolving]
  - Rash [Recovering/Resolving]

NARRATIVE: CASE EVENT DATE: 20240711
